FAERS Safety Report 6652555-4 (Version None)
Quarter: 2010Q1

REPORT INFORMATION
  Report Type: 
  Country: None (occurrence: None)
  Receive Date: 20100325
  Receipt Date: 20100325
  Transmission Date: 20100710
  Serious: No
  Sender: FDA-Public Use
  Company Number: None

PATIENT
  Age: 21 Year
  Sex: Female
  Weight: 54.4316 kg

DRUGS (1)
  1. ORACEA [Suspect]

REACTIONS (9)
  - ANXIETY [None]
  - CONSTIPATION [None]
  - DEPRESSION [None]
  - FATIGUE [None]
  - FLUID RETENTION [None]
  - HEADACHE [None]
  - MYALGIA [None]
  - SINUS DISORDER [None]
  - WEIGHT INCREASED [None]
